FAERS Safety Report 9370312 (Version 1)
Quarter: 2013Q2

REPORT INFORMATION
  Report Type: Spontaneous
  Country: US (occurrence: US)
  Receive Date: 20130626
  Receipt Date: 20130626
  Transmission Date: 20140414
  Serious: No
  Sender: FDA-Public Use
  Company Number: US-JNJFOC-20130520860

PATIENT
  Age: 41 Year
  Sex: Male
  Weight: 91.17 kg

DRUGS (6)
  1. INVEGA [Suspect]
     Indication: BIPOLAR DISORDER
     Route: 048
     Dates: start: 20130520, end: 20130526
  2. INVEGA [Suspect]
     Indication: BIPOLAR DISORDER
     Route: 048
     Dates: start: 20130526
  3. INVEGA [Suspect]
     Indication: ALCOHOLISM
     Route: 048
     Dates: start: 20130520, end: 20130526
  4. INVEGA [Suspect]
     Indication: ALCOHOLISM
     Route: 048
     Dates: start: 20130526
  5. INVEGA [Suspect]
     Indication: AFFECTIVE DISORDER
     Route: 048
     Dates: start: 20130526
  6. INVEGA [Suspect]
     Indication: AFFECTIVE DISORDER
     Route: 048
     Dates: start: 20130520, end: 20130526

REACTIONS (3)
  - Sedation [Not Recovered/Not Resolved]
  - Off label use [Unknown]
  - Incorrect dose administered [Unknown]
